FAERS Safety Report 19599692 (Version 11)
Quarter: 2023Q1

REPORT INFORMATION
  Report Type: Spontaneous
  Country: US (occurrence: US)
  Receive Date: 20210722
  Receipt Date: 20230317
  Transmission Date: 20230418
  Serious: Yes (Other)
  Sender: FDA-Public Use
  Company Number: US-PFIZER INC-2021868305

PATIENT
  Age: 77 Year
  Sex: Female
  Weight: 58.51 kg

DRUGS (3)
  1. PREMARIN [Suspect]
     Active Substance: ESTROGENS, CONJUGATED
     Indication: Urinary tract infection
     Dosage: A SMALL AMOUNT EACH TIME 3 TIMES/ WEEK
  2. PREMARIN [Suspect]
     Active Substance: ESTROGENS, CONJUGATED
     Indication: Urinary tract disorder
     Dosage: 0.625 MG, 3X/DAY
  3. PREMARIN [Suspect]
     Active Substance: ESTROGENS, CONJUGATED
     Dosage: 0.625 MG, 3X/DAY

REACTIONS (10)
  - Urinary tract infection [Unknown]
  - Diabetes mellitus [Unknown]
  - Knee arthroplasty [Unknown]
  - Off label use [Unknown]
  - Off label use [Unknown]
  - Anxiety [Unknown]
  - Osteoporosis [Unknown]
  - Body height decreased [Unknown]
  - Dyspepsia [Unknown]
  - Cough [Unknown]
